FAERS Safety Report 8804466 (Version 1)
Quarter: 2012Q4

REPORT INFORMATION
  Report Type: 
  Country: TW (occurrence: TW)
  Receive Date: 20120923
  Receipt Date: 20120923
  Transmission Date: 20130627
  Serious: Yes (Hospitalization)
  Sender: FDA-Public Use
  Company Number: TW-009507513-1209TWN008777

PATIENT
  Age: 30 Year
  Sex: Female

DRUGS (2)
  1. PUREGONFOLLITROPIN BETA [Suspect]
     Indication: OVULATION INDUCTION
     Dosage: 100 IU, qod
     Route: 058
     Dates: start: 201203
  2. CEPHAMYCIN [Concomitant]
     Indication: CELLULITIS
     Dosage: UNK
     Dates: start: 20120910, end: 20120917

REACTIONS (4)
  - Ovarian cyst [Unknown]
  - Ovarian cyst torsion [Unknown]
  - Ovarian necrosis [Unknown]
  - Cellulitis [Recovering/Resolving]
